FAERS Safety Report 7880465-3 (Version None)
Quarter: 2011Q4

REPORT INFORMATION
  Report Type: 
  Country: None (occurrence: None)
  Receive Date: 20111101
  Receipt Date: 20111031
  Transmission Date: 20120403
  Serious: Yes (Hospitalization)
  Sender: FDA-Public Use
  Company Number: US-CEPHALON-2011005028

PATIENT
  Sex: Female
  Weight: 98 kg

DRUGS (6)
  1. MORPHINE [Suspect]
  2. METFORMIN HCL [Concomitant]
  3. TOPAMAX [Concomitant]
  4. ABILIFY [Concomitant]
  5. OMEPRAZOLE [Concomitant]
  6. NUVIGIL [Suspect]
     Indication: LUNG DISORDER
     Route: 048
     Dates: start: 20110901

REACTIONS (3)
  - ANGINA PECTORIS [None]
  - CHEST PAIN [None]
  - ACCIDENTAL OVERDOSE [None]
